FAERS Safety Report 7660357-5 (Version None)
Quarter: 2011Q3

REPORT INFORMATION
  Report Type: 
  Country: None (occurrence: None)
  Receive Date: 20110805
  Receipt Date: 20110729
  Transmission Date: 20111222
  Serious: Yes (Other)
  Sender: FDA-Public Use
  Company Number: US-US-EMD SERONO, INC.-7067931

PATIENT
  Sex: Male

DRUGS (2)
  1. REBIF [Suspect]
     Route: 058
     Dates: start: 20110601, end: 20110727
  2. REBIF [Suspect]
     Indication: PRODUCT USED FOR UNKNOWN INDICATION
     Route: 058
     Dates: start: 20091030, end: 20110601

REACTIONS (4)
  - BLOOD TEST ABNORMAL [None]
  - INJECTION SITE PRURITUS [None]
  - COAGULOPATHY [None]
  - INJECTION SITE PAIN [None]
